FAERS Safety Report 10204411 (Version 1)
Quarter: 2014Q2

REPORT INFORMATION
  Report Type: Spontaneous
  Country: US (occurrence: US)
  Receive Date: 20140529
  Receipt Date: 20140529
  Transmission Date: 20141212
  Serious: No
  Sender: FDA-Public Use
  Company Number: US-SANOFI-AVENTIS-2013SA059931

PATIENT
  Age: 75 Year
  Sex: Male

DRUGS (4)
  1. LANTUS SOLOSTAR [Suspect]
     Dosage: START DATE: 2 MONTHS AGO?DOSE: 12-16 UNITS
     Route: 051
  2. SOLOSTAR [Suspect]
  3. LANTUS [Suspect]
  4. INSULIN [Concomitant]

REACTIONS (3)
  - Blood glucose increased [Unknown]
  - Hypoaesthesia [Unknown]
  - Muscle spasms [Unknown]
